FAERS Safety Report 5276535-9 (Version None)
Quarter: 2007Q1

REPORT INFORMATION
  Report Type: 
  Country: None (occurrence: None)
  Receive Date: 20061213
  Receipt Date: 20050110
  Transmission Date: 20070707
  Serious: Yes (Hospitalization)
  Sender: FDA-Public Use
  Company Number: 2004UW25571

PATIENT
  Age: 82 Year
  Sex: Female

DRUGS (6)
  1. SEROQUEL [Suspect]
     Indication: SLEEP DISORDER
     Dosage: 25 MG PO
     Route: 048
     Dates: start: 20041209, end: 20041209
  2. BUSPAR [Concomitant]
  3. VALIUM [Concomitant]
  4. HYDROCHLOROTHIAZIDE [Concomitant]
  5. LANTUS [Concomitant]
  6. XALATAN [Concomitant]

REACTIONS (3)
  - AGITATION [None]
  - EXTRAPYRAMIDAL DISORDER [None]
  - INSOMNIA [None]
